FAERS Safety Report 5884515-5 (Version None)
Quarter: 2008Q3

REPORT INFORMATION
  Report Type: 
  Country: None (occurrence: None)
  Receive Date: 20080911
  Receipt Date: 20080905
  Transmission Date: 20090109
  Serious: Yes (Hospitalization)
  Sender: FDA-Public Use
  Company Number: GXKR2008DE08499

PATIENT
  Sex: Female

DRUGS (6)
  1. ACETYLSALICYLIC ACID (NGX) (ACETYLSALICYLIC ACID) UNKNOWN, 100MG [Suspect]
     Dosage: 100 MG, QD, ORAL
     Route: 048
     Dates: start: 20060101, end: 20080324
  2. RAMIPRIL [Suspect]
     Dosage: 2.5 MG, QD, ORAL
     Route: 048
     Dates: start: 20060101, end: 20080324
  3. SIMVASTATIN [Suspect]
     Indication: HYPERLIPIDAEMIA
     Dosage: 20 MG, QD, ORAL
     Route: 048
     Dates: start: 20050101, end: 20080324
  4. APONAL (DOXEPIN HYDROCHLORIDE) 50MG [Suspect]
     Indication: DEPRESSION
     Dosage: 50 MG, QD, ORAL
     Route: 048
     Dates: start: 20060101, end: 20080325
  5. OCULOTECT (POLYVIDONE) [Suspect]
     Dosage: OPHTHALMIC
     Route: 047
     Dates: start: 19900101, end: 20080325
  6. CALCIUM D3 ^STADA^ (CALCIUM, COLECALCIFEROL) [Concomitant]

REACTIONS (1)
  - AUTOIMMUNE THROMBOCYTOPENIA [None]
